FAERS Safety Report 10402623 (Version 2)
Quarter: 2014Q3

REPORT INFORMATION
  Report Type: Spontaneous
  Country: US (occurrence: US)
  Receive Date: 20140822
  Receipt Date: 20140919
  Transmission Date: 20150326
  Serious: No
  Sender: FDA-Public Use
  Company Number: US-009507513-1408USA009749

PATIENT
  Sex: Female
  Weight: 75.74 kg

DRUGS (1)
  1. DULERA [Suspect]
     Active Substance: FORMOTEROL FUMARATE DIHYDRATE\MOMETASONE FUROATE
     Indication: ASTHMA
     Dosage: 2 PUFFS TWICE DAILY,ROUTE- INHALATION
     Dates: start: 20140402

REACTIONS (3)
  - Wrong technique in drug usage process [Unknown]
  - No adverse event [Unknown]
  - Product quality issue [Unknown]
